FAERS Safety Report 9778976 (Version 2)
Quarter: 2014Q1

REPORT INFORMATION
  Report Type: Spontaneous
  Country: FR (occurrence: FR)
  Receive Date: 20131223
  Receipt Date: 20140109
  Transmission Date: 20141002
  Serious: Yes (Hospitalization)
  Sender: FDA-Public Use
  Company Number: FR-PFIZER INC-2013363236

PATIENT
  Age: 49 Year
  Sex: Female

DRUGS (3)
  1. XANAX [Suspect]
     Dosage: 3 MG, DAILY
     Route: 048
     Dates: end: 20131208
  2. DORMICUM TABLET ^ROCHE^ [Suspect]
     Dosage: UNK
     Route: 048
     Dates: end: 20131208
  3. SERESTA [Concomitant]
     Dosage: 15 MG, DAILY
     Dates: start: 20131208

REACTIONS (1)
  - Convulsion [Recovered/Resolved]
